FAERS Safety Report 6103726-7 (Version None)
Quarter: 2009Q1

REPORT INFORMATION
  Report Type: 
  Country: None (occurrence: None)
  Receive Date: 20090305
  Receipt Date: 20090220
  Transmission Date: 20090719
  Serious: No
  Sender: FDA-Public Use
  Company Number: PHHY2009JP06382

PATIENT
  Age: 72 Year
  Sex: Female

DRUGS (4)
  1. GLEEVEC [Suspect]
     Indication: CHRONIC MYELOID LEUKAEMIA
     Dosage: 300 MG, UNK
     Route: 048
     Dates: start: 20020401
  2. GLEEVEC [Suspect]
     Dosage: 100 MG, UNK
     Route: 048
  3. GLEEVEC [Suspect]
     Dosage: 200 MG, UNK
     Route: 048
  4. GLEEVEC [Suspect]
     Dosage: 300 MG, UNK
     Route: 048
     Dates: end: 20020501

REACTIONS (2)
  - NEUTROPENIA [None]
  - PLATELET COUNT INCREASED [None]
